FAERS Safety Report 11184801 (Version 1)
Quarter: 2015Q2

REPORT INFORMATION
  Report Type: Spontaneous
  Country: DK (occurrence: DK)
  Receive Date: 20150612
  Receipt Date: 20150612
  Transmission Date: 20150821
  Serious: Yes (Life-Threatening, Hospitalization)
  Sender: FDA-Public Use
  Company Number: DK-PFIZER INC-2015194239

PATIENT
  Age: 74 Year
  Sex: Female

DRUGS (10)
  1. NORITREN [Concomitant]
     Active Substance: NORTRIPTYLINE HYDROCHLORIDE
     Indication: DEPRESSION
     Dates: start: 2015
  2. OXABENZ [Concomitant]
     Active Substance: OXAZEPAM
     Indication: ANXIETY
  3. ENACODAN [Concomitant]
     Indication: HYPERTENSION
  4. PAMOL [Concomitant]
     Active Substance: ACETAMINOPHEN
     Indication: PAIN
  5. INSULATARD NPH HUMAN [Concomitant]
     Active Substance: INSULIN HUMAN
     Indication: DIABETES MELLITUS
  6. LYRICA [Suspect]
     Active Substance: PREGABALIN
     Indication: ANXIETY
     Dosage: 150 MG, 3X/DAY
     Route: 048
     Dates: start: 201502, end: 20150407
  7. DOLOL /00599201/ [Concomitant]
     Indication: PAIN
  8. OLANZAPIN [Concomitant]
     Active Substance: OLANZAPINE
  9. METFORMINHYDROCHLORID [Concomitant]
     Indication: DIABETES MELLITUS
  10. MOVICOL [Concomitant]
     Active Substance: POLYETHYLENE GLYCOL 3350\POTASSIUM CHLORIDE\SODIUM BICARBONATE\SODIUM CHLORIDE
     Indication: CONSTIPATION

REACTIONS (11)
  - Loss of consciousness [Recovered/Resolved]
  - Depressed level of consciousness [Recovering/Resolving]
  - Fatigue [Unknown]
  - Confusional state [Unknown]
  - Disability [Unknown]
  - Wheelchair user [Unknown]
  - Memory impairment [Unknown]
  - Cognitive disorder [Unknown]
  - Pyrexia [Unknown]
  - Somnolence [Unknown]
  - Sedation [Recovering/Resolving]

NARRATIVE: CASE EVENT DATE: 2015
